FAERS Safety Report 23687037 (Version 1)
Quarter: 2024Q1

REPORT INFORMATION
  Report Type: Spontaneous
  Country: US (occurrence: US)
  Receive Date: 20240329
  Receipt Date: 20240329
  Transmission Date: 20240409
  Serious: No
  Sender: FDA-Public Use
  Company Number: US-PERRIGO-23US012957

PATIENT
  Age: 71 Year
  Sex: Female
  Weight: 54.422 kg

DRUGS (6)
  1. PSEUDOEPHEDRINE HYDROCHLORIDE [Suspect]
     Active Substance: PSEUDOEPHEDRINE HYDROCHLORIDE
     Indication: Paranasal sinus discomfort
     Dosage: 120 MG, SINGLE
     Route: 048
     Dates: start: 20231108, end: 20231108
  2. PSEUDOEPHEDRINE HYDROCHLORIDE [Suspect]
     Active Substance: PSEUDOEPHEDRINE HYDROCHLORIDE
     Indication: Sinus pain
  3. OXYCONTIN [Concomitant]
     Active Substance: OXYCODONE HYDROCHLORIDE
     Indication: Neuralgia
     Dosage: UNK
     Route: 065
     Dates: start: 2003
  4. LYRICA [Concomitant]
     Active Substance: PREGABALIN
     Indication: Neuralgia
     Dosage: UNK
     Route: 065
     Dates: start: 2003
  5. CLONAZEPAM [Concomitant]
     Active Substance: CLONAZEPAM
     Indication: Neuralgia
     Dosage: UNK
     Route: 065
     Dates: start: 2003
  6. REMERON [Concomitant]
     Active Substance: MIRTAZAPINE
     Indication: Neuralgia
     Dosage: UNK
     Route: 065
     Dates: start: 2003

REACTIONS (5)
  - Feeling jittery [Recovered/Resolved]
  - Tachyphrenia [Recovered/Resolved]
  - Hypervigilance [Recovered/Resolved]
  - Insomnia [Not Recovered/Not Resolved]
  - Nervousness [Recovered/Resolved]

NARRATIVE: CASE EVENT DATE: 20231108
